FAERS Safety Report 5914494-3 (Version None)
Quarter: 2008Q4

REPORT INFORMATION
  Report Type: 
  Country: None (occurrence: None)
  Receive Date: 20081008
  Receipt Date: 20080926
  Transmission Date: 20090506
  Serious: Yes (Other)
  Sender: FDA-Public Use
  Company Number: GXKR2008JP09315

PATIENT
  Sex: Female

DRUGS (2)
  1. CARBOPLATIN [Suspect]
     Indication: NEOPLASM MALIGNANT
     Dosage: INFUSION
     Route: 042
  2. GEMZAR [Suspect]
     Indication: NEOPLASM MALIGNANT
     Dosage: INFUSION
     Route: 042

REACTIONS (2)
  - COUGH [None]
  - SHOCK [None]
